FAERS Safety Report 10158268 (Version 2)
Quarter: 2014Q2

REPORT INFORMATION
  Report Type: Spontaneous
  Country: US (occurrence: US)
  Receive Date: 20140507
  Receipt Date: 20140507
  Transmission Date: 20141212
  Serious: Yes (Hospitalization)
  Sender: FDA-Public Use
  Company Number: US-FRI-1000066598

PATIENT
  Age: 49 Year
  Sex: Female

DRUGS (7)
  1. FETZIMA [Suspect]
     Indication: DEPRESSION
     Dosage: 20 MG
     Route: 048
     Dates: start: 20140113, end: 20140114
  2. FETZIMA [Suspect]
     Dosage: 40 MG
     Route: 048
     Dates: start: 20140115, end: 20140126
  3. FETZIMA [Suspect]
     Dosage: 80 MG
     Route: 048
     Dates: start: 20140127, end: 20140226
  4. FETZIMA [Suspect]
     Indication: DEPRESSION
     Dosage: 120 MG
     Route: 048
     Dates: start: 20140227, end: 201404
  5. ABILIFY [Concomitant]
     Dosage: 5 MG
     Route: 048
  6. TRAZODONE [Concomitant]
     Dosage: 50-100 MG AT BEDTIME AS NEEDED
     Route: 048
  7. SERAX [Concomitant]
     Dosage: 15 MG
     Route: 048

REACTIONS (2)
  - Hypoglycaemic seizure [Recovered/Resolved]
  - Drug ineffective [Recovered/Resolved]
